FAERS Safety Report 21850918 (Version 1)
Quarter: 2023Q1

REPORT INFORMATION
  Report Type: Spontaneous
  Country: MY (occurrence: MY)
  Receive Date: 20230111
  Receipt Date: 20230111
  Transmission Date: 20230418
  Serious: Yes (Other)
  Sender: FDA-Public Use
  Company Number: MY-BEH-2023153917

PATIENT
  Age: 35 Year
  Sex: Female

DRUGS (2)
  1. HUMAN IMMUNOGLOBULIN G [Suspect]
     Active Substance: HUMAN IMMUNOGLOBULIN G
     Indication: Myasthenia gravis crisis
     Dosage: 0.4G/KG/DAY
     Route: 042
  2. PREDNISOLONE [Concomitant]
     Active Substance: PREDNISOLONE
     Indication: Myasthenia gravis
     Dosage: 1 MILLIGRAM/KILOGRAM, QD
     Route: 048

REACTIONS (5)
  - Ischaemic stroke [Unknown]
  - Hemiplegia [Unknown]
  - Hyperreflexia [Unknown]
  - Brain stem stroke [Unknown]
  - Gaze palsy [Unknown]
